FAERS Safety Report 14600630 (Version 1)
Quarter: 2018Q1

REPORT INFORMATION
  Report Type: Spontaneous
  Country: DE (occurrence: DE)
  Receive Date: 20180305
  Receipt Date: 20180305
  Transmission Date: 20180509
  Serious: Yes (Death, Hospitalization, Disabling, Other)
  Sender: FDA-Public Use
  Company Number: DE-PFIZER INC-2016603702

PATIENT
  Age: 65 Year
  Sex: Female
  Weight: 114 kg

DRUGS (18)
  1. EUTHYROX [Concomitant]
     Active Substance: LEVOTHYROXINE SODIUM
     Dosage: 125 UG, 1X/DAY
  2. ABILIFY [Concomitant]
     Active Substance: ARIPIPRAZOLE
     Dosage: 15 MG, 1X/DAY
  3. PREDNISOLONE. [Concomitant]
     Active Substance: PREDNISOLONE
     Dosage: 45 MG, DAILY
  4. METFORMIN BIOMO [Suspect]
     Active Substance: METFORMIN HYDROCHLORIDE
     Indication: DIABETES MELLITUS
     Dosage: 1000 MG EVERY DAY
     Route: 048
  5. BENAZEPRIL [Concomitant]
     Active Substance: BENAZEPRIL HYDROCHLORIDE
     Dosage: 20 MG, 1X/DAY
  6. TORASEMID AL [Concomitant]
     Active Substance: TORSEMIDE
     Dosage: 30 MG, 1X/DAY
  7. TEMAZEPAM. [Concomitant]
     Active Substance: TEMAZEPAM
     Dosage: 10 MG, DAILY
  8. VERAPAMIL HENNING [Concomitant]
     Dosage: 120 MG, 1X/DAY
  9. PREGABALIN. [Concomitant]
     Active Substance: PREGABALIN
     Dosage: 150 MG, DAILY
  10. AZITHROMYCIN ANHYDROUS. [Concomitant]
     Active Substance: AZITHROMYCIN ANHYDROUS
     Indication: BRONCHIECTASIS
     Dosage: 500 MG, DAILY
     Route: 048
  11. LORATADIN [Concomitant]
     Active Substance: LORATADINE
     Dosage: 10 MG, DAILY
  12. LYRICA [Concomitant]
     Active Substance: PREGABALIN
     Dosage: 300 MG, DAILY
  13. RAMIPRIL. [Concomitant]
     Active Substance: RAMIPRIL
     Dosage: 5 MG, DAILY
  14. VENLAFAXINE HCL [Suspect]
     Active Substance: VENLAFAXINE HYDROCHLORIDE
     Indication: DEPRESSION
     Dosage: 75 MG, 1X/DAY (1 DF IN MORNING EVERY DAY)
     Route: 048
  15. CELLIDRIN [Concomitant]
     Dosage: 150 MG, 1X/DAY
  16. ULTIBRO BREEZHALER [Concomitant]
     Active Substance: GLYCOPYRRONIUM\INDACATEROL
     Dosage: UNK
  17. PANTOPRAZOL [Concomitant]
     Active Substance: PANTOPRAZOLE SODIUM
     Dosage: 20 MG, DAILY
     Route: 048
  18. INDACATEROL [Concomitant]
     Active Substance: INDACATEROL
     Dosage: 1 GTT, DAILY

REACTIONS (3)
  - Interstitial lung disease [Not Recovered/Not Resolved]
  - Respiratory failure [Fatal]
  - Condition aggravated [Not Recovered/Not Resolved]

NARRATIVE: CASE EVENT DATE: 20160101
